FAERS Safety Report 4520113-3 (Version None)
Quarter: 2004Q4

REPORT INFORMATION
  Report Type: 
  Country: None (occurrence: None)
  Receive Date: 20041202
  Receipt Date: 20041202
  Transmission Date: 20050328
  Serious: Yes (Hospitalization)
  Sender: FDA-Public Use
  Company Number: None

PATIENT
  Sex: Male
  Weight: 77 kg

DRUGS (3)
  1. CISPLATIN [Suspect]
     Dosage: 200 MG
     Route: 042
     Dates: start: 20040616
  2. CISPLATIN [Suspect]
     Dosage: 200 MG
     Route: 042
     Dates: start: 20040708
  3. RADIATION THERAPY [Concomitant]

REACTIONS (6)
  - BLOOD PRESSURE ABNORMAL [None]
  - DYSPHAGIA [None]
  - GASTRITIS [None]
  - MARKEDLY REDUCED DIETARY INTAKE [None]
  - RADIATION MUCOSITIS [None]
  - REFUSAL OF TREATMENT BY RELATIVE [None]
